FAERS Safety Report 21692265 (Version 1)
Quarter: 2022Q4

REPORT INFORMATION
  Report Type: Spontaneous
  Country: US (occurrence: US)
  Receive Date: 20221207
  Receipt Date: 20221207
  Transmission Date: 20230112
  Serious: Yes (Hospitalization, Other)
  Sender: FDA-Public Use
  Company Number: US-MLMSERVICE-20221117-3924539-1

PATIENT
  Age: 77 Year
  Sex: Male

DRUGS (4)
  1. CARBOPLATIN [Suspect]
     Active Substance: CARBOPLATIN
     Indication: Lung squamous cell carcinoma stage III
     Dosage: DOSE-REDUCED (75%)
  2. PACLITAXEL [Suspect]
     Active Substance: PACLITAXEL
     Indication: Lung squamous cell carcinoma stage III
     Dosage: DOSE-REDUCED (75%)
  3. CARBOPLATIN [Suspect]
     Active Substance: CARBOPLATIN
     Indication: Tumour invasion
     Dosage: DOSE-REDUCED (75%)
  4. PACLITAXEL [Suspect]
     Active Substance: PACLITAXEL
     Indication: Tumour invasion
     Dosage: DOSE-REDUCED (75%)

REACTIONS (7)
  - Fatigue [Unknown]
  - Streptococcal bacteraemia [Unknown]
  - Neutropenia [Unknown]
  - Oesophagitis [Unknown]
  - Cough [Unknown]
  - Pneumonia streptococcal [Unknown]
  - Off label use [Unknown]
